FAERS Safety Report 6434149-9 (Version None)
Quarter: 2009Q4

REPORT INFORMATION
  Report Type: 
  Country: None (occurrence: None)
  Receive Date: 20091110
  Receipt Date: 20081029
  Transmission Date: 20100525
  Serious: No
  Sender: FDA-Public Use
  Company Number: US-ASTRAZENECA-2009SE12218

PATIENT
  Age: 60 Year
  Sex: Female

DRUGS (14)
  1. PRILOSEC OTC [Suspect]
     Indication: GASTROOESOPHAGEAL REFLUX DISEASE
     Dosage: 1 TABLET, 1 /DAY
     Route: 048
     Dates: start: 20081023, end: 20081028
  2. LEVOTHYROXINE SODIUM [Concomitant]
     Dosage: UNKNOWN
  3. DIVISTAT [Concomitant]
     Dosage: UNKNOWN
  4. COLCHICINE [Concomitant]
     Dosage: UNKNOWN
  5. QUINIDINE HCL [Concomitant]
     Dosage: UNKNOWN
  6. TRAZODONE HCL [Concomitant]
     Dosage: UNKNOWN
  7. HYDROXYZINE [Concomitant]
     Dosage: UNKNOWN
  8. POTASSIUM CHLORIDE [Concomitant]
     Dosage: UNKNOWN
  9. CELEBREX [Concomitant]
     Dosage: UNKNOWN
  10. TEMAZEPAM [Concomitant]
     Dosage: UNKNOWN
  11. PROHEARE [Concomitant]
     Dosage: UNKNOWN
  12. ALBUTEROL [Concomitant]
     Dosage: UNKNOWN
  13. NOVOLIN [Concomitant]
     Dosage: UNKNOWN
  14. TRAMADOL HCL [Concomitant]
     Dosage: UNKNOWN

REACTIONS (1)
  - RECTAL HAEMORRHAGE [None]
